FAERS Safety Report 25472490 (Version 1)
Quarter: 2025Q2

REPORT INFORMATION
  Report Type: Report from Study
  Country: IN (occurrence: IN)
  Receive Date: 20250624
  Receipt Date: 20250624
  Transmission Date: 20250717
  Serious: Yes (Hospitalization, Congenital Anomaly)
  Sender: MYLAN
  Company Number: IN-MYLANLABS-2025M1052493

PATIENT

DRUGS (8)
  1. TELMISARTAN [Suspect]
     Active Substance: TELMISARTAN
     Indication: Product used for unknown indication
  2. TELMISARTAN [Suspect]
     Active Substance: TELMISARTAN
  3. TELMISARTAN [Suspect]
     Active Substance: TELMISARTAN
     Route: 064
  4. TELMISARTAN [Suspect]
     Active Substance: TELMISARTAN
     Route: 064
  5. TELMISARTAN [Suspect]
     Active Substance: TELMISARTAN
  6. TELMISARTAN [Suspect]
     Active Substance: TELMISARTAN
  7. TELMISARTAN [Suspect]
     Active Substance: TELMISARTAN
     Route: 064
  8. TELMISARTAN [Suspect]
     Active Substance: TELMISARTAN
     Route: 064

REACTIONS (2)
  - Congenital anomaly [Unknown]
  - Foetal exposure during pregnancy [Recovered/Resolved]
